FAERS Safety Report 13681296 (Version 2)
Quarter: 2017Q3

REPORT INFORMATION
  Report Type: Spontaneous
  Country: US (occurrence: US)
  Receive Date: 20170623
  Receipt Date: 20170822
  Transmission Date: 20171127
  Serious: No
  Sender: FDA-Public Use
  Company Number: US-PFIZER INC-2017268750

PATIENT
  Age: 53 Year
  Sex: Female

DRUGS (1)
  1. IBRANCE [Suspect]
     Active Substance: PALBOCICLIB
     Indication: BREAST CANCER
     Dosage: 125 MG, CYCLIC(TAKE 1 CAPSULE DAILY FOR 3 WEEKS AND STOP FOR 1 WEEK THEN REPEAT)
     Route: 048
     Dates: start: 201706

REACTIONS (5)
  - Stomatitis [Recovered/Resolved]
  - Fatigue [Unknown]
  - Full blood count decreased [Unknown]
  - Bone pain [Recovering/Resolving]
  - White blood cell count decreased [Unknown]
